FAERS Safety Report 7972530-7 (Version None)
Quarter: 2011Q4

REPORT INFORMATION
  Report Type: 
  Country: None (occurrence: None)
  Receive Date: 20111209
  Receipt Date: 20111129
  Transmission Date: 20120403
  Serious: Yes (Death)
  Sender: FDA-Public Use
  Company Number: ALK_02108_2011

PATIENT
  Sex: Male
  Weight: 64.4108 kg

DRUGS (7)
  1. MIRAPEX [Concomitant]
  2. TRAZODONE HCL [Concomitant]
  3. VESICARE [Concomitant]
  4. VIVITROL [Concomitant]
  5. VIVITROL [Suspect]
     Indication: ALCOHOLISM
     Dosage: (380 MG 1X/4 WEEKS INTRAMUSCULAR)
     Route: 030
     Dates: start: 20110415, end: 20110706
  6. SEROQUEL [Concomitant]
  7. ATARAX [Concomitant]

REACTIONS (4)
  - INTENTIONAL SELF-INJURY [None]
  - TREATMENT NONCOMPLIANCE [None]
  - HEAD INJURY [None]
  - ACCIDENT [None]
